FAERS Safety Report 21094000 (Version 1)
Quarter: 2022Q3

REPORT INFORMATION
  Report Type: Spontaneous
  Country: GB (occurrence: GB)
  Receive Date: 20220718
  Receipt Date: 20220718
  Transmission Date: 20221027
  Serious: Yes (Other)
  Sender: FDA-Public Use
  Company Number: None

PATIENT
  Age: 91 Year
  Sex: Female
  Weight: 51 kg

DRUGS (11)
  1. AMLODIPINE [Suspect]
     Active Substance: AMLODIPINE BESYLATE
     Indication: Product used for unknown indication
     Dosage: 5 MILLIGRAM, QD
     Route: 065
     Dates: start: 20220610
  2. BRINZOLAMIDE [Concomitant]
     Active Substance: BRINZOLAMIDE
     Dosage: UNK, BID (ONE DROP TO BE USED TWICE A DAY IN THE AFFECTED...)
     Route: 065
     Dates: start: 20170815
  3. ESTRADIOL [Concomitant]
     Active Substance: ESTRADIOL
     Dosage: PLACE INSIDE VAGINA DAILY FOR 2 WEEKS THEN TWIC...
     Route: 067
     Dates: start: 20201009
  4. BECLOMETHASONE\FORMOTEROL [Concomitant]
     Active Substance: BECLOMETHASONE\FORMOTEROL
     Dosage: 2 DOSAGE FORM, BID (2 PUFFS TWICE DAILY)
     Route: 055
     Dates: start: 20161028
  5. HYALURONATE SODIUM [Concomitant]
     Active Substance: HYALURONATE SODIUM
     Dosage: 1 DOSAGE FORM, QID
     Route: 065
     Dates: start: 20220303
  6. LANSOPRAZOLE [Concomitant]
     Active Substance: LANSOPRAZOLE
     Dosage: 1 DOSAGE FORM, BID (UNTIL SEEN AT CAMERA TEST ...)
     Route: 065
     Dates: start: 20210111
  7. LATANOPROST [Concomitant]
     Active Substance: LATANOPROST
     Dosage: 1 DOSAGE FORM, QD
     Route: 065
     Dates: start: 20210721
  8. ACETAMINOPHEN [Concomitant]
     Active Substance: ACETAMINOPHEN
     Dosage: 2 DOSAGE FORM, QID (EVERY 4-6 HOURS UP TO FOUR TIME...)
     Route: 065
     Dates: start: 20180328
  9. ALBUTEROL [Concomitant]
     Active Substance: ALBUTEROL
     Dosage: 2 DOSAGE FORM, QID (PRN)
     Route: 055
     Dates: start: 20110322
  10. THEICAL D3 [Concomitant]
     Dosage: 1 DOSAGE FORM, QD
     Route: 065
     Dates: start: 20200615
  11. CARBOMER [Concomitant]
     Active Substance: CARBOMER
     Dosage: 1 DOSAGE FORM, QD (AT NIGHT)
     Route: 065
     Dates: start: 20170320

REACTIONS (4)
  - Oral mucosal discolouration [Unknown]
  - Dizziness [Recovering/Resolving]
  - Joint swelling [Unknown]
  - Dyspepsia [Unknown]

NARRATIVE: CASE EVENT DATE: 20220708
